FAERS Safety Report 4302511-6 (Version None)
Quarter: 2004Q1

REPORT INFORMATION
  Report Type: 
  Country: None (occurrence: None)
  Receive Date: 20040223
  Receipt Date: 20040223
  Transmission Date: 20041129
  Serious: Yes (Death, Life-Threatening, Hospitalization)
  Sender: FDA-Public Use
  Company Number: None

PATIENT
  Age: 51 Year
  Sex: Male
  Weight: 113.3993 kg

DRUGS (6)
  1. TNKASE [Suspect]
     Indication: MYOCARDIAL INFARCTION
     Dosage: IV
     Route: 042
     Dates: start: 20030401, end: 20030401
  2. INTEGRILIN [Suspect]
     Indication: CORONARY ANGIOPLASTY
     Dosage: 2.0 MCG IV/KG/MI
     Route: 042
     Dates: start: 20030401, end: 20030401
  3. INTEGRILIN [Suspect]
     Indication: MYOCARDIAL INFARCTION
     Dosage: 2.0 MCG IV/KG/MI
     Route: 042
     Dates: start: 20030401, end: 20030401
  4. ASPIRIN [Concomitant]
  5. PLAVIX [Concomitant]
  6. HEPARIN [Suspect]

REACTIONS (4)
  - HAEMORRHAGE [None]
  - HAEMORRHAGE INTRACRANIAL [None]
  - HYPERTENSION [None]
  - POST PROCEDURAL COMPLICATION [None]
